FAERS Safety Report 4520495-2 (Version None)
Quarter: 2004Q4

REPORT INFORMATION
  Report Type: 
  Country: None (occurrence: None)
  Receive Date: 20041203
  Receipt Date: 20041129
  Transmission Date: 20050328
  Serious: Yes (Hospitalization)
  Sender: FDA-Public Use
  Company Number: 196267

PATIENT
  Sex: Female

DRUGS (1)
  1. AVONEX [Suspect]
     Indication: MULTIPLE SCLEROSIS
     Dosage: 30 UG; QW; IM
     Route: 030

REACTIONS (5)
  - BIPOLAR DISORDER [None]
  - DRUG LEVEL INCREASED [None]
  - DRUG TOXICITY [None]
  - GRAND MAL CONVULSION [None]
  - MALAISE [None]
